FAERS Safety Report 7360614-6 (Version None)
Quarter: 2011Q1

REPORT INFORMATION
  Report Type: 
  Country: None (occurrence: None)
  Receive Date: 20110318
  Receipt Date: 20110308
  Transmission Date: 20110831
  Serious: Yes (Death)
  Sender: FDA-Public Use
  Company Number: US-AMGEN-USASP2011012968

PATIENT
  Sex: Male

DRUGS (1)
  1. ENBREL [Suspect]
     Indication: PSORIATIC ARTHROPATHY
     Dosage: UNK
     Dates: start: 20071201, end: 20090401

REACTIONS (4)
  - OESOPHAGEAL CARCINOMA [None]
  - LUNG NEOPLASM MALIGNANT [None]
  - ANAL CANCER [None]
  - GASTRIC CANCER [None]
